FAERS Safety Report 26085896 (Version 1)
Quarter: 2025Q4

REPORT INFORMATION
  Report Type: Spontaneous
  Country: CN (occurrence: CN)
  Receive Date: 20251125
  Receipt Date: 20251125
  Transmission Date: 20260117
  Serious: Yes (Other)
  Sender: ROCHE
  Company Number: CN-ROCHE-10000439690

PATIENT

DRUGS (1)
  1. XOFLUZA [Suspect]
     Active Substance: BALOXAVIR MARBOXIL
     Indication: Product used for unknown indication
     Dosage: COST OF 200 YUAN PER DOSE
     Route: 065

REACTIONS (4)
  - Insomnia [Unknown]
  - Dizziness [Unknown]
  - Head discomfort [Unknown]
  - Pyrexia [Unknown]
